FAERS Safety Report 14958162 (Version 3)
Quarter: 2021Q1

REPORT INFORMATION
  Report Type: Report from Study
  Country: BR (occurrence: BR)
  Receive Date: 20180531
  Receipt Date: 20210127
  Transmission Date: 20210419
  Serious: Yes (Hospitalization, Other)
  Sender: FDA-Public Use
  Company Number: PHHY2017BR077046

PATIENT
  Sex: Female
  Weight: 60 kg

DRUGS (3)
  1. FORASEQ [Suspect]
     Active Substance: BUDESONIDE\FORMOTEROL FUMARATE
     Indication: LUNG DISORDER
     Dosage: 2 DF, QD, STARTED FRO MORE THAN 10 YEARS AGO
     Route: 048
  2. FORASEQ [Suspect]
     Active Substance: BUDESONIDE\FORMOTEROL FUMARATE
     Indication: PNEUMONIA
  3. FORASEQ [Suspect]
     Active Substance: BUDESONIDE\FORMOTEROL FUMARATE
     Indication: CHRONIC OBSTRUCTIVE PULMONARY DISEASE
     Dosage: UNK
     Route: 065

REACTIONS (18)
  - Aphonia [Unknown]
  - Asthenia [Unknown]
  - Essential tremor [Unknown]
  - Expired product administered [Unknown]
  - Vision blurred [Unknown]
  - Confusional state [Unknown]
  - Tremor [Not Recovered/Not Resolved]
  - Fatigue [Not Recovered/Not Resolved]
  - Product use in unapproved indication [Unknown]
  - Drug dependence [Unknown]
  - Pneumonia [Recovered/Resolved]
  - Colitis [Unknown]
  - Oropharyngeal pain [Unknown]
  - Malaise [Unknown]
  - Incorrect route of product administration [Unknown]
  - Diverticulitis [Unknown]
  - Dyspnoea [Not Recovered/Not Resolved]
  - Dysphonia [Unknown]
